FAERS Safety Report 10367906 (Version 1)
Quarter: 2014Q3

REPORT INFORMATION
  Report Type: Spontaneous
  Country: US (occurrence: None)
  Receive Date: 20140806
  Receipt Date: 20140806
  Transmission Date: 20150326
  Serious: Yes (Other)
  Sender: FDA-Public Use
  Company Number: None

PATIENT
  Age: 66 Year
  Sex: Female
  Weight: 124.29 kg

DRUGS (1)
  1. FARXIGA [Suspect]
     Active Substance: DAPAGLIFLOZIN PROPANEDIOL
     Indication: TYPE 2 DIABETES MELLITUS
     Dosage: 1 PILL DAILY, ONCE DAILY, TAKEN BY MOUTH
     Route: 048

REACTIONS (3)
  - Blood glucose decreased [None]
  - Genital pain [None]
  - Vulvovaginal mycotic infection [None]

NARRATIVE: CASE EVENT DATE: 20140721
